FAERS Safety Report 18436175 (Version 2)
Quarter: 2020Q4

REPORT INFORMATION
  Report Type: Report from Study
  Country: US (occurrence: US)
  Receive Date: 20201028
  Receipt Date: 20201214
  Transmission Date: 20210114
  Serious: Yes (Death, Hospitalization)
  Sender: FDA-Public Use
  Company Number: US-BAUSCH-BL-2020-029207

PATIENT
  Age: 64 Year
  Sex: Male
  Weight: 73.09 kg

DRUGS (2)
  1. XIFAXAN [Suspect]
     Active Substance: RIFAXIMIN
     Indication: HEPATIC CIRRHOSIS
     Route: 048
     Dates: start: 2019
  2. XIFAXAN [Suspect]
     Active Substance: RIFAXIMIN
     Indication: HEPATIC ENCEPHALOPATHY
     Dosage: RECEIVED SAMPLES FROM HIS HCP
     Route: 048
     Dates: start: 20200819

REACTIONS (7)
  - Hepatic cirrhosis [Not Recovered/Not Resolved]
  - Death [Fatal]
  - Gastrointestinal haemorrhage [Recovering/Resolving]
  - Inability to afford medication [Unknown]
  - Hospitalisation [Unknown]
  - Therapy interrupted [Unknown]
  - Toxic encephalopathy [Recovering/Resolving]

NARRATIVE: CASE EVENT DATE: 2020
